FAERS Safety Report 13848664 (Version 1)
Quarter: 2017Q3

REPORT INFORMATION
  Report Type: Spontaneous
  Country: JP (occurrence: JP)
  Receive Date: 20170809
  Receipt Date: 20170809
  Transmission Date: 20171127
  Serious: Yes (Hospitalization)
  Sender: FDA-Public Use
  Company Number: JP-STRIDES ARCOLAB LIMITED-2017SP011500

PATIENT

DRUGS (3)
  1. METRONIDAZOLE. [Suspect]
     Active Substance: METRONIDAZOLE
     Indication: OSTEOMYELITIS
     Dosage: 1500 MG, PER DAY
     Route: 048
  2. INSULIN [Concomitant]
     Active Substance: INSULIN NOS
     Indication: TYPE 2 DIABETES MELLITUS
     Dosage: UNK, DAILY
     Route: 065
  3. CIPROFLOXACIN. [Concomitant]
     Active Substance: CIPROFLOXACIN
     Indication: OSTEOMYELITIS
     Dosage: 400 MG, PER DAY
     Route: 065

REACTIONS (10)
  - Ophthalmoplegia [Recovered/Resolved]
  - Nausea [Recovered/Resolved]
  - Nystagmus [Recovered/Resolved]
  - Depression [Recovered/Resolved]
  - Dysarthria [Recovered/Resolved]
  - Vitamin B1 deficiency [Recovered/Resolved]
  - Toxic encephalopathy [Recovered/Resolved]
  - Ataxia [Recovered/Resolved]
  - Decreased appetite [Recovered/Resolved]
  - Dizziness [Recovered/Resolved]
